FAERS Safety Report 8673572 (Version 3)
Quarter: 2017Q1

REPORT INFORMATION
  Report Type: Spontaneous
  Country: PT (occurrence: PT)
  Receive Date: 20120719
  Receipt Date: 20170209
  Transmission Date: 20170429
  Serious: Yes (Congenital Anomaly, Other)
  Sender: FDA-Public Use
  Company Number: PT-JNJFOC-20120705030

PATIENT
  Sex: Male
  Weight: 2.95 kg

DRUGS (1)
  1. XARELTO [Suspect]
     Active Substance: RIVAROXABAN
     Indication: PRODUCT USED FOR UNKNOWN INDICATION
     Route: 064
     Dates: start: 20110919, end: 20110928

REACTIONS (2)
  - Congenital cerebral cyst [Unknown]
  - Foetal exposure during pregnancy [Unknown]
